FAERS Safety Report 10648190 (Version 1)
Quarter: 2014Q4

REPORT INFORMATION
  Report Type: Spontaneous
  Country: None (occurrence: None)
  Receive Date: 20141211
  Receipt Date: 20141211
  Transmission Date: 20150529
  Serious: No
  Sender: FDA-Public Use
  Company Number: None

PATIENT
  Age: 5 Month
  Sex: Female
  Weight: 5.9 kg

DRUGS (1)
  1. SYNAGIS [Suspect]
     Active Substance: PALIVIZUMAB
     Indication: RESPIRATORY SYNCYTIAL VIRUS TEST POSITIVE
     Dosage: 1 PILL TWICE DAILY TAKEN BY MOUTH
     Dates: start: 20141208, end: 20141210

REACTIONS (4)
  - Hypersomnia [None]
  - Abnormal behaviour [None]
  - Malaise [None]
  - Diet refusal [None]

NARRATIVE: CASE EVENT DATE: 20141115
